FAERS Safety Report 6179898-5 (Version None)
Quarter: 2009Q2

REPORT INFORMATION
  Report Type: 
  Country: None (occurrence: None)
  Receive Date: 20090505
  Receipt Date: 20090408
  Transmission Date: 20091009
  Serious: No
  Sender: FDA-Public Use
  Company Number: US-TYCO HEALTHCARE/MALLINCKRODT-T200900844

PATIENT
  Age: 51 Year
  Sex: Female
  Weight: 81.633 kg

DRUGS (7)
  1. OXYCODONE HCL EXTENDED-RELEASE [Suspect]
     Indication: PAIN
     Dosage: UNK
     Route: 048
  2. HYDROCHLOROTHIAZIDE [Concomitant]
     Dosage: 12.5 MG, QD
     Route: 048
  3. ELAVIL [Concomitant]
     Dosage: 50 MG, QHS PRN
     Route: 048
  4. LISINOPRIL [Concomitant]
     Indication: HYPERTENSION
     Dosage: 20 MG, QD
     Route: 048
  5. DETROL LA [Concomitant]
     Indication: MICTURITION URGENCY
     Dosage: 4 MG, QD
     Route: 048
  6. MOTRIN [Concomitant]
     Indication: PAIN
     Dosage: 800 MG, BID PRN
     Route: 048
  7. PRILOSEC [Concomitant]
     Indication: PROPHYLAXIS
     Dosage: UNK
     Route: 048

REACTIONS (3)
  - ARTHRALGIA [None]
  - HYPOAESTHESIA [None]
  - PAIN [None]
